FAERS Safety Report 7161888-7 (Version None)
Quarter: 2010Q4

REPORT INFORMATION
  Report Type: 
  Country: None (occurrence: None)
  Receive Date: 20101215
  Receipt Date: 20100712
  Transmission Date: 20110411
  Serious: Yes (Other)
  Sender: FDA-Public Use
  Company Number: CA-PFIZER INC-2010086626

PATIENT
  Age: 54 Year
  Sex: Female
  Weight: 55.782 kg

DRUGS (11)
  1. LYRICA [Suspect]
     Indication: FIBROMYALGIA
     Dosage: 25 MG, 1X/DAY
  2. CLONAZEPAM [Concomitant]
     Dosage: UNK
  3. DIMENHYDRINATE [Concomitant]
     Dosage: UNK
  4. TYLENOL W/ CODEINE NO. 3 [Concomitant]
     Dosage: UNK
  5. HYOSCINE [Concomitant]
     Dosage: UNK
  6. TRIMEBUTINE [Concomitant]
     Dosage: UNK
  7. NARATRIPTAN [Concomitant]
     Dosage: UNK
  8. ESOMEPRAZOLE [Concomitant]
     Dosage: UNK
  9. CETIRIZINE [Concomitant]
     Dosage: UNK
  10. MELOXICAM [Concomitant]
     Dosage: UNK
  11. TYLENOL (CAPLET) [Concomitant]

REACTIONS (6)
  - AGITATION [None]
  - CONDITION AGGRAVATED [None]
  - DEPRESSION [None]
  - MOOD SWINGS [None]
  - SLEEP DISORDER [None]
  - SUICIDAL IDEATION [None]
